FAERS Safety Report 20724154 (Version 3)
Quarter: 2022Q2

REPORT INFORMATION
  Report Type: Report from Study
  Country: None (occurrence: CN)
  Receive Date: 20220419
  Receipt Date: 20220608
  Transmission Date: 20220720
  Serious: Yes (Hospitalization)
  Sender: FDA-Public Use
  Company Number: CN-Jiangsu Hengrui Medicine Co., Ltd.-2127902

PATIENT
  Age: 47 Year
  Sex: Female
  Weight: 43 kg

DRUGS (7)
  1. OXALIPLATIN [Suspect]
     Active Substance: OXALIPLATIN
     Indication: Gastric cancer
     Route: 041
     Dates: start: 20220211, end: 20220304
  2. SERPLULIMAB [Suspect]
     Active Substance: SERPLULIMAB
     Route: 041
     Dates: start: 20220201, end: 20220304
  3. Diammonium Glycyrrhizinate Enteric-coated Capsules [Concomitant]
     Route: 048
     Dates: start: 20220308
  4. GIMERACIL\OTERACIL\TEGAFUR [Suspect]
     Active Substance: GIMERACIL\OTERACIL\TEGAFUR
     Route: 048
     Dates: start: 20220211
  5. LEUCOGEN [Concomitant]
     Active Substance: LEUCOGEN
     Route: 048
     Dates: start: 20220317
  6. Iron Dextran Dispersible Tablet [Concomitant]
     Route: 048
     Dates: start: 20220317
  7. Recombinant Human Granulocyte Colony- Stimulating Factor Injection [Concomitant]
     Route: 058
     Dates: start: 20220320, end: 20220321

REACTIONS (5)
  - White blood cell count decreased [Recovered/Resolved]
  - Alanine aminotransferase increased [Recovered/Resolved]
  - Aspartate aminotransferase increased [Not Recovered/Not Resolved]
  - Total bile acids increased [Recovered/Resolved]
  - Blood alkaline phosphatase increased [Not Recovered/Not Resolved]

NARRATIVE: CASE EVENT DATE: 20220324
